FAERS Safety Report 7627067 (Version 2)
Quarter: 2013Q3

REPORT INFORMATION
  Report Type: Report from Study
  Country: US (occurrence: US)
  Receive Date: 20101013
  Receipt Date: 20130705
  Transmission Date: 20140515
  Serious: No
  Sender: FDA-Public Use
  Company Number: US-ASTRAZENECA-2010SE25728

PATIENT
  Age: 50 Year
  Sex: Female
  Weight: 52.4 kg

DRUGS (9)
  1. SYMBICORT PMDI [Suspect]
     Indication: CHRONIC OBSTRUCTIVE PULMONARY DISEASE
     Dosage: 160/4.5 UG 2 PUFFS BID
     Route: 055
     Dates: start: 2008
  2. HYDROCODONE [Concomitant]
     Indication: PAIN
     Dosage: GENERIC FORM, 10 325 PRN
     Route: 048
  3. XANAX [Concomitant]
     Indication: ANXIETY
     Dosage: 1 MG 2 OR 3 TIMES A DAY
     Route: 048
  4. XANAX [Concomitant]
     Indication: SLEEP DISORDER
     Dosage: 1 MG 2 OR 3 TIMES A DAY
     Route: 048
  5. XANAX [Concomitant]
     Indication: NECK PAIN
     Dosage: 1 MG 2 OR 3 TIMES A DAY
     Route: 048
  6. FLEXERIL [Concomitant]
     Indication: MUSCLE TIGHTNESS
     Route: 048
     Dates: start: 2009
  7. SAVELLA [Concomitant]
     Indication: NECK PAIN
     Route: 048
     Dates: start: 201210
  8. ADVAIR [Concomitant]
  9. NORCO [Concomitant]
     Indication: INTERNAL FIXATION OF FRACTURE
     Dosage: 10/325 MGM
     Dates: start: 20130418

REACTIONS (12)
  - Dyspnoea [Unknown]
  - Malaise [Unknown]
  - Activities of daily living impaired [Unknown]
  - Body height decreased [Unknown]
  - Neck pain [Unknown]
  - Muscle tightness [Unknown]
  - Intervertebral disc degeneration [Unknown]
  - Anxiety [Unknown]
  - Insomnia [Unknown]
  - Cough [Unknown]
  - Headache [Unknown]
  - Drug dose omission [Unknown]
